FAERS Safety Report 8127889-7 (Version None)
Quarter: 2011Q4

REPORT INFORMATION
  Report Type: 
  Country: None (occurrence: None)
  Receive Date: 20111227
  Receipt Date: 20110907
  Transmission Date: 20120403
  Serious: No
  Sender: FDA-Public Use
  Company Number: PHEH2011US03580

PATIENT
  Age: 38 Year
  Sex: Male

DRUGS (4)
  1. GILENYA [Suspect]
  2. BENAZEPRIL HYDROCHLORIDE [Concomitant]
  3. LIPITOR [Concomitant]
  4. ZOCOR [Concomitant]

REACTIONS (2)
  - NUCLEAR MAGNETIC RESONANCE IMAGING BRAIN ABNORMAL [None]
  - COUGH [None]
